FAERS Safety Report 6043962-1 (Version None)
Quarter: 2009Q1

REPORT INFORMATION
  Report Type: 
  Country: None (occurrence: None)
  Receive Date: 20090120
  Receipt Date: 20090112
  Transmission Date: 20090719
  Serious: Yes (Other)
  Sender: FDA-Public Use
  Company Number: PT-PFIZER INC-2008088697

PATIENT

DRUGS (2)
  1. CELECOXIB [Suspect]
     Indication: ARTHRITIS
     Route: 048
  2. ANTIHYPERTENSIVES [Concomitant]

REACTIONS (1)
  - EYE HAEMORRHAGE [None]
